FAERS Safety Report 15343675 (Version 6)
Quarter: 2019Q3

REPORT INFORMATION
  Report Type: Spontaneous
  Country: US (occurrence: US)
  Receive Date: 20180903
  Receipt Date: 20190917
  Transmission Date: 20191004
  Serious: No
  Sender: FDA-Public Use
  Company Number: US-PFIZER INC-2018354594

PATIENT
  Age: 62 Year
  Sex: Female
  Weight: 95.24 kg

DRUGS (1)
  1. GABAPENTIN. [Suspect]
     Active Substance: GABAPENTIN
     Indication: NEUROPATHY PERIPHERAL
     Dosage: UNK
     Dates: start: 2014

REACTIONS (4)
  - Off label use [Unknown]
  - Product use in unapproved indication [Unknown]
  - Drug hypersensitivity [Recovered/Resolved]
  - Pruritus allergic [Recovered/Resolved]

NARRATIVE: CASE EVENT DATE: 2014
